FAERS Safety Report 8181590-2 (Version None)
Quarter: 2012Q1

REPORT INFORMATION
  Report Type: 
  Country: None (occurrence: None)
  Receive Date: 20120302
  Receipt Date: 20120222
  Transmission Date: 20120608
  Serious: Yes (Hospitalization)
  Sender: FDA-Public Use
  Company Number: CA-ELI_LILLY_AND_COMPANY-CA201202006909

PATIENT
  Age: 67 Year
  Sex: Female

DRUGS (13)
  1. OXYCONTIN [Concomitant]
  2. PANTOPRAZOLE SODIUM [Concomitant]
  3. ASPIRIN [Concomitant]
     Dosage: 81 MG, UNK
  4. FUROSEMIDE [Concomitant]
  5. GABAPENTIN [Concomitant]
  6. METFORMIN HCL [Concomitant]
  7. OXYCET [Concomitant]
  8. VITAMIN D [Concomitant]
  9. METOCLOP [Concomitant]
  10. FORTEO [Suspect]
     Indication: OSTEOPOROSIS
     Dosage: 20 UG, QD
     Route: 058
     Dates: start: 20110726, end: 20120217
  11. ATACAND [Concomitant]
  12. BACLOFEN [Concomitant]
  13. PREDNISONE TAB [Concomitant]

REACTIONS (1)
  - PYREXIA [None]
